FAERS Safety Report 4991436-9 (Version None)
Quarter: 2006Q2

REPORT INFORMATION
  Report Type: 
  Country: None (occurrence: None)
  Receive Date: 20060502
  Receipt Date: 20060502
  Transmission Date: 20061013
  Serious: Yes (Hospitalization, Other)
  Sender: FDA-Public Use
  Company Number: None

PATIENT
  Sex: Female
  Weight: 87.8 kg

DRUGS (6)
  1. CARBOPLATIN [Suspect]
     Indication: OVARIAN EPITHELIAL CANCER
     Dosage: 382 MG
     Dates: start: 20060420
  2. TAXOL [Suspect]
     Dosage: 343 MG
     Dates: start: 20060420
  3. COZAAR [Concomitant]
  4. LIPITOR [Concomitant]
  5. PRILOSEC [Concomitant]
  6. THYROID TAB [Concomitant]

REACTIONS (4)
  - ASTHENIA [None]
  - FEBRILE NEUTROPENIA [None]
  - FEELING COLD [None]
  - WHITE BLOOD CELL COUNT DECREASED [None]
